FAERS Safety Report 25278385 (Version 2)
Quarter: 2025Q3

REPORT INFORMATION
  Report Type: Spontaneous
  Country: US (occurrence: US)
  Receive Date: 20250507
  Receipt Date: 20250715
  Transmission Date: 20251021
  Serious: Yes (Death, Other)
  Sender: GALDERMA
  Company Number: US-GALDERMA-US2025006950

PATIENT

DRUGS (1)
  1. NEMLUVIO [Suspect]
     Active Substance: NEMOLIZUMAB-ILTO
     Indication: Neurodermatitis
     Route: 058
     Dates: start: 20241213, end: 20241213

REACTIONS (1)
  - Death [Fatal]

NARRATIVE: CASE EVENT DATE: 20250225
